FAERS Safety Report 10599146 (Version 1)
Quarter: 2014Q4

REPORT INFORMATION
  Report Type: Report from Study
  Country: US (occurrence: US)
  Receive Date: 20141121
  Receipt Date: 20141121
  Transmission Date: 20150529
  Serious: Yes (Other)
  Sender: FDA-Public Use
  Company Number: US-BAYER-2014-170574

PATIENT
  Age: 71 Year
  Sex: Male
  Weight: 91.2 kg

DRUGS (11)
  1. VENTILAN [SALBUTAMOL] [Concomitant]
     Indication: CHRONIC OBSTRUCTIVE PULMONARY DISEASE
     Dosage: 1 PUFF(S), UNK
     Route: 048
     Dates: start: 201009
  2. ACETYLSALICYLIC ACID({=100 MG) [Suspect]
     Active Substance: ASPIRIN
     Indication: CARDIOVASCULAR EVENT PROPHYLAXIS
     Dosage: 32.5 MG, QD
     Route: 048
     Dates: start: 201007, end: 201410
  3. METOPROLOL [Concomitant]
     Active Substance: METOPROLOL
     Indication: HYPERTENSION
     Dosage: 100 MG, QD
     Dates: start: 201008
  4. LISINOPRIL. [Suspect]
     Active Substance: LISINOPRIL
     Indication: HYPERTENSION
     Dosage: 2.5 MG, QD
     Route: 048
     Dates: start: 201008, end: 201410
  5. GLIPIZIDE. [Concomitant]
     Active Substance: GLIPIZIDE
     Indication: DIABETES MELLITUS
     Dosage: 2.5 MG, QD
     Route: 048
     Dates: start: 201101
  6. LASIX [Concomitant]
     Active Substance: FUROSEMIDE
     Indication: OEDEMA
     Dosage: 10 MG, QD
     Route: 048
     Dates: start: 201307
  7. NAPROXEN SODIUM ({= 220 MG) [Suspect]
     Active Substance: NAPROXEN SODIUM
     Indication: OSTEOARTHRITIS
     Dosage: UNK, TID
     Dates: start: 20121028, end: 20140930
  8. NEXIUM [Concomitant]
     Active Substance: ESOMEPRAZOLE MAGNESIUM
     Dosage: UNK
     Dates: start: 20121028, end: 20140930
  9. NAPROXEN SODIUM ({= 220 MG) [Suspect]
     Active Substance: NAPROXEN SODIUM
     Indication: RHEUMATOID ARTHRITIS
  10. METFORMIN [Suspect]
     Active Substance: METFORMIN HYDROCHLORIDE
     Indication: DIABETES MELLITUS
     Dosage: 1000 UNK, UNK
     Route: 048
     Dates: start: 201008, end: 201410
  11. FINASTERIDE. [Concomitant]
     Active Substance: FINASTERIDE
     Indication: BENIGN PROSTATIC HYPERPLASIA
     Dosage: 5 MG, QD
     Dates: start: 199604

REACTIONS (3)
  - Blood creatinine increased [Not Recovered/Not Resolved]
  - Renal failure [Not Recovered/Not Resolved]
  - Glomerular filtration rate decreased [Not Recovered/Not Resolved]

NARRATIVE: CASE EVENT DATE: 20140923
